FAERS Safety Report 4691349-6 (Version None)
Quarter: 2005Q2

REPORT INFORMATION
  Report Type: 
  Country: None (occurrence: None)
  Receive Date: 20050610
  Receipt Date: 20050602
  Transmission Date: 20051028
  Serious: Yes (Other)
  Sender: FDA-Public Use
  Company Number: 2005049318

PATIENT
  Sex: Female
  Weight: 58.9676 kg

DRUGS (10)
  1. LIPITOR [Suspect]
     Indication: ILL-DEFINED DISORDER
     Dosage: 20 MG (20 MG, 1 IN 1 D)
     Dates: start: 20010701
  2. NORVASC [Suspect]
     Indication: CARDIAC DISORDER
     Dosage: 20 MG (20 MG, 1 IN 1 D)
  3. LASIX [Suspect]
     Indication: ILL-DEFINED DISORDER
     Dosage: 40 MG (40 MG, 1 IN 1D)
     Dates: start: 20040901
  4. ZETIA [Suspect]
     Indication: BLOOD CHOLESTEROL
     Dosage: 10 MG (10 MG, 1 IN 1 D)
     Dates: start: 20050201
  5. BENGAY (MENTHOL) [Suspect]
     Indication: FIBROMYALGIA
     Dosage: (3 IN 1 D), TOPICAL
     Route: 061
  6. LIPITOR [Concomitant]
  7. NORVASC [Concomitant]
  8. FUROSEMIDE [Concomitant]
  9. ZETIA [Concomitant]
  10. BENGAY (MENTHOL) [Concomitant]

REACTIONS (1)
  - UNEVALUABLE EVENT [None]
